FAERS Safety Report 23070776 (Version 1)
Quarter: 2023Q4

REPORT INFORMATION
  Report Type: Spontaneous
  Country: US (occurrence: US)
  Receive Date: 20231016
  Receipt Date: 20231016
  Transmission Date: 20240109
  Serious: No
  Sender: FDA-Public Use
  Company Number: US-PFIZER INC-202300327744

PATIENT
  Age: 64 Year
  Sex: Female

DRUGS (4)
  1. PAXLOVID [Suspect]
     Active Substance: NIRMATRELVIR\RITONAVIR
     Indication: COVID-19 treatment
     Dosage: UNK
     Dates: start: 20230928, end: 20231003
  2. ESTROGENS [Concomitant]
     Active Substance: ESTROGENS
     Dosage: UNK
     Route: 061
     Dates: start: 20190301
  3. LYSINE [Concomitant]
     Active Substance: LYSINE
     Dosage: UNK
     Dates: start: 20221101
  4. FAMOTIDINE [Concomitant]
     Active Substance: FAMOTIDINE
     Dosage: 40 MG, DAILY
     Route: 048
     Dates: start: 20200501

REACTIONS (2)
  - COVID-19 [Not Recovered/Not Resolved]
  - Disease recurrence [Not Recovered/Not Resolved]

NARRATIVE: CASE EVENT DATE: 20231011
